FAERS Safety Report 14285166 (Version 2)
Quarter: 2018Q1

REPORT INFORMATION
  Report Type: Report from Study
  Country: AT (occurrence: AT)
  Receive Date: 20171214
  Receipt Date: 20180116
  Transmission Date: 20180509
  Serious: Yes (Hospitalization, Other)
  Sender: FDA-Public Use
  Company Number: AT-PFIZER INC-2017526077

PATIENT
  Age: 61 Year
  Sex: Female
  Weight: 81.8 kg

DRUGS (16)
  1. NETUPITANT [Concomitant]
     Active Substance: NETUPITANT
     Dosage: UNK
     Route: 065
  2. FOLSAN [Concomitant]
     Active Substance: FOLIC ACID
     Dosage: 5 MG, UNK
  3. METOCLOPRAMIDE. [Concomitant]
     Active Substance: METOCLOPRAMIDE
     Dosage: UNK
     Route: 065
  4. LEUCOVORIN /00566701/ [Concomitant]
     Active Substance: LEUCOVORIN
     Dosage: UNK
     Route: 065
     Dates: start: 201710
  5. LASIX [Concomitant]
     Active Substance: FUROSEMIDE
     Dosage: 40 MG, UNK
     Route: 065
  6. GEMCITABINE HYDROCHLORIDE. [Suspect]
     Active Substance: GEMCITABINE HYDROCHLORIDE
     Dosage: 1900 MG/M2, UNK
     Dates: start: 20170710
  7. ABRAXANE [Suspect]
     Active Substance: PACLITAXEL
     Dosage: 380 MG/M2, UNK
     Route: 041
     Dates: end: 20170728
  8. OLEOVIT [Concomitant]
  9. AMOXICILLIN + CLAV. POTASSIUM [Concomitant]
     Active Substance: AMOXICILLIN\CLAVULANATE POTASSIUM
     Indication: INFECTION PROPHYLAXIS
     Dosage: 2 G, UNK
     Route: 048
  10. ABRAXANE [Suspect]
     Active Substance: PACLITAXEL
     Dosage: 380 MILLIGRAM/SQ. METER
     Route: 041
  11. 5 FLUOROURACIL /00098801/ [Concomitant]
     Active Substance: FLUOROURACIL
     Dosage: UNK
     Dates: start: 201710
  12. XARELTO [Concomitant]
     Active Substance: RIVAROXABAN
     Route: 065
  13. PANTOLOC /01263204/ [Concomitant]
     Active Substance: PANTOPRAZOLE SODIUM
     Dosage: 40 MG, UNK
     Route: 065
  14. ABRAXANE [Suspect]
     Active Substance: PACLITAXEL
     Indication: PANCREATIC CARCINOMA
     Dosage: 240 MG/M2, UNK
     Route: 041
     Dates: start: 20170710
  15. IRINOTECAN [Concomitant]
     Active Substance: IRINOTECAN
     Dosage: UNK
     Route: 065
     Dates: start: 201710
  16. GEMCITABINE HYDROCHLORIDE. [Suspect]
     Active Substance: GEMCITABINE HYDROCHLORIDE
     Indication: PANCREATIC CARCINOMA
     Dosage: 5700 MG/M2, UNK
     Dates: start: 20170317

REACTIONS (13)
  - Vomiting [Recovered/Resolved]
  - Neuropathy peripheral [Not Recovered/Not Resolved]
  - Nausea [Recovered/Resolved]
  - Deep vein thrombosis [Recovered/Resolved]
  - Hypervolaemia [Recovered/Resolved]
  - Diarrhoea [Recovered/Resolved]
  - Dyspnoea [Recovered/Resolved]
  - Diarrhoea [Recovered/Resolved]
  - Nausea [Recovered/Resolved]
  - Clostridium difficile infection [Recovered/Resolved]
  - Anaemia macrocytic [Recovered/Resolved]
  - Erysipelas [Recovered/Resolved]
  - Vomiting [Recovered/Resolved]

NARRATIVE: CASE EVENT DATE: 20170509
